FAERS Safety Report 6410241-X (Version None)
Quarter: 2009Q4

REPORT INFORMATION
  Report Type: 
  Country: None (occurrence: None)
  Receive Date: 20091022
  Receipt Date: 20091016
  Transmission Date: 20100525
  Serious: Yes (Other)
  Sender: FDA-Public Use
  Company Number: US-ASTRAZENECA-2009SE20688

PATIENT
  Sex: Female

DRUGS (3)
  1. ARIMIDEX [Suspect]
     Indication: BREAST CANCER
     Route: 048
     Dates: start: 20071201, end: 20090901
  2. ARIMIDEX [Suspect]
     Route: 048
     Dates: start: 20091001
  3. CALCIUM [Concomitant]

REACTIONS (10)
  - ANXIETY [None]
  - BREAST CYST [None]
  - GOITRE [None]
  - HEPATIC CYST [None]
  - MUSCLE SPASMS [None]
  - NON-HODGKIN'S LYMPHOMA [None]
  - OVARIAN CYST [None]
  - SLEEP DISORDER [None]
  - THYROID NEOPLASM [None]
  - TRIGGER FINGER [None]
